FAERS Safety Report 7459043-6 (Version None)
Quarter: 2011Q2

REPORT INFORMATION
  Report Type: 
  Country: None (occurrence: None)
  Receive Date: 20110505
  Receipt Date: 20090128
  Transmission Date: 20111010
  Serious: No
  Sender: FDA-Public Use
  Company Number: US-BIOGENIDEC-2009BI003241

PATIENT
  Sex: Female

DRUGS (1)
  1. TYSABRI [Suspect]
     Indication: MULTIPLE SCLEROSIS
     Route: 042
     Dates: start: 20070110

REACTIONS (6)
  - ARTHRALGIA [None]
  - FATIGUE [None]
  - OEDEMA PERIPHERAL [None]
  - BONE PAIN [None]
  - MEMORY IMPAIRMENT [None]
  - VISUAL IMPAIRMENT [None]
